FAERS Safety Report 10499319 (Version 2)
Quarter: 2014Q4

REPORT INFORMATION
  Report Type: Spontaneous
  Country: US (occurrence: US)
  Receive Date: 20141006
  Receipt Date: 20141006
  Transmission Date: 20150528
  Serious: No
  Sender: FDA-Public Use
  Company Number: US-AMGEN INC.-USASP2014039076

PATIENT
  Age: 56 Year
  Sex: Female
  Weight: 110.66 kg

DRUGS (1)
  1. XGEVA [Suspect]
     Active Substance: DENOSUMAB
     Indication: METASTASES TO BONE
     Dosage: 120 MG, Q4WK
     Route: 058
     Dates: start: 20111222, end: 20140527

REACTIONS (1)
  - Loose tooth [Unknown]

NARRATIVE: CASE EVENT DATE: 20140428
